FAERS Safety Report 10586943 (Version 1)
Quarter: 2014Q4

REPORT INFORMATION
  Report Type: Spontaneous
  Country: US (occurrence: None)
  Receive Date: 20141114
  Receipt Date: 20141114
  Transmission Date: 20150529
  Serious: Yes (Other)
  Sender: FDA-Public Use
  Company Number: None

PATIENT
  Age: 72 Year
  Sex: Male
  Weight: 68.49 kg

DRUGS (1)
  1. MAGNESIUM OXIDE. [Suspect]
     Active Substance: MAGNESIUM OXIDE
     Indication: CARDIAC OPERATION
     Route: 048
     Dates: start: 201409, end: 20141029

REACTIONS (3)
  - Dysgeusia [None]
  - Weight decreased [None]
  - Pollakiuria [None]

NARRATIVE: CASE EVENT DATE: 201409
